FAERS Safety Report 9813677 (Version 1)
Quarter: 2014Q1

REPORT INFORMATION
  Report Type: Spontaneous
  Country: US (occurrence: US)
  Receive Date: 20140113
  Receipt Date: 20140113
  Transmission Date: 20141002
  Serious: Yes (Death)
  Sender: FDA-Public Use
  Company Number: US-PFIZER INC-2014005686

PATIENT
  Age: 35 Year
  Sex: Male

DRUGS (8)
  1. MORPHINE SULFATE [Suspect]
     Route: 048
  2. GABAPENTIN [Suspect]
     Route: 048
  3. HYDROXYZINE PAMOATE [Suspect]
     Route: 048
  4. ALPRAZOLAM [Suspect]
     Route: 048
  5. PAROXETINE [Suspect]
     Route: 048
  6. TRAMADOL [Suspect]
     Route: 048
  7. OMEPRAZOLE [Suspect]
     Route: 048
  8. LORAZEPAM [Suspect]
     Route: 048

REACTIONS (3)
  - Death [Fatal]
  - Cardiac arrest [Fatal]
  - Respiratory arrest [Fatal]
